FAERS Safety Report 23533770 (Version 1)
Quarter: 2024Q1

REPORT INFORMATION
  Report Type: Spontaneous
  Country: CA (occurrence: CA)
  Receive Date: 20240216
  Receipt Date: 20240216
  Transmission Date: 20240410
  Serious: Yes (Death)
  Sender: FDA-Public Use
  Company Number: CA-HLS-202400267

PATIENT
  Age: 27 Year
  Sex: Male

DRUGS (3)
  1. CLOZAPINE [Suspect]
     Active Substance: CLOZAPINE
     Indication: Product used for unknown indication
     Dosage: TABLETS DOSAGE FORM
     Route: 065
  2. LUVOX [Concomitant]
     Active Substance: FLUVOXAMINE MALEATE
     Dosage: TABLETS DOSAGE FORM
     Route: 065
  3. PALIPERIDONE PALMITATE [Concomitant]
     Active Substance: PALIPERIDONE PALMITATE
     Route: 065

REACTIONS (1)
  - Completed suicide [Fatal]
